FAERS Safety Report 9725653 (Version 1)
Quarter: 2013Q4

REPORT INFORMATION
  Report Type: Spontaneous
  Country: AU (occurrence: AU)
  Receive Date: 20131203
  Receipt Date: 20131203
  Transmission Date: 20140711
  Serious: Yes (Hospitalization)
  Sender: FDA-Public Use
  Company Number: AU-ASTRAZENECA-2013SE87087

PATIENT
  Age: 38 Year
  Sex: Female

DRUGS (3)
  1. SEROQUEL [Suspect]
     Route: 048
  2. SERTRALINE HYDROCHLORIDE [Suspect]
     Route: 048
  3. SAPHRIS [Suspect]
     Indication: AFFECTIVE DISORDER
     Route: 060

REACTIONS (8)
  - Serotonin syndrome [Unknown]
  - Blood pressure increased [Recovered/Resolved]
  - Rash [Recovered/Resolved]
  - Pyrexia [Recovered/Resolved]
  - Tremor [Recovered/Resolved]
  - Heart rate increased [Recovered/Resolved]
  - Underdose [Recovered/Resolved]
  - Off label use [Unknown]
